FAERS Safety Report 5796303-9 (Version None)
Quarter: 2008Q3

REPORT INFORMATION
  Report Type: 
  Country: None (occurrence: None)
  Receive Date: 20080701
  Receipt Date: 20080618
  Transmission Date: 20090109
  Serious: Yes (Other)
  Sender: FDA-Public Use
  Company Number: DE-BAYER-200821099GPV

PATIENT

DRUGS (14)
  1. FLUDARABINE PHOSPHATE [Suspect]
     Indication: BONE MARROW CONDITIONING REGIMEN
     Route: 042
  2. ANTI-THYMOCYTE GLOBULIN NOS [Suspect]
     Indication: BONE MARROW CONDITIONING REGIMEN
  3. ORTHOCLONE OKT3 [Suspect]
     Indication: BONE MARROW CONDITIONING REGIMEN
  4. CYCLOPHOSPHAMIDE [Suspect]
     Indication: BONE MARROW CONDITIONING REGIMEN
  5. THIOTEPA [Suspect]
     Indication: BONE MARROW CONDITIONING REGIMEN
  6. ANTI-LYMPHOCYTE GLOBULIN [Suspect]
     Indication: BONE MARROW CONDITIONING REGIMEN
  7. ACYCLOVIR SODIUM [Concomitant]
     Indication: ANTIVIRAL PROPHYLAXIS
  8. ITRACONAZOLE [Concomitant]
     Indication: ANTIVIRAL PROPHYLAXIS
  9. VORICONAZOLE [Concomitant]
     Indication: ANTIFUNGAL PROPHYLAXIS
  10. CO-TRIMOXAZOLE [Concomitant]
     Indication: ANTIBIOTIC PROPHYLAXIS
  11. METRONIDAZOLE HCL [Concomitant]
     Indication: DRUG USE FOR UNKNOWN INDICATION
  12. IMMUNE GLOBULIN INTRAVENOUS (HUMAN) [Concomitant]
     Indication: DRUG USE FOR UNKNOWN INDICATION
     Route: 042
  13. NEUPOGEN [Concomitant]
     Indication: WHITE BLOOD CELL COUNT DECREASED
  14. RIBAVIRIN [Concomitant]
     Indication: ANTIVIRAL PROPHYLAXIS

REACTIONS (10)
  - HAEMOLYTIC ANAEMIA [None]
  - HEPATIC ENZYME INCREASED [None]
  - INTERSTITIAL LUNG DISEASE [None]
  - KLEBSIELLA BACTERAEMIA [None]
  - MUCOSAL INFLAMMATION [None]
  - ORGANISING PNEUMONIA [None]
  - PNEUMONIA CYTOMEGALOVIRAL [None]
  - PSEUDOMONAS INFECTION [None]
  - PYREXIA [None]
  - VIRAL HAEMORRHAGIC CYSTITIS [None]
